FAERS Safety Report 15183220 (Version 1)
Quarter: 2018Q3

REPORT INFORMATION
  Report Type: Spontaneous
  Country: JP (occurrence: JP)
  Receive Date: 20180723
  Receipt Date: 20180723
  Transmission Date: 20181010
  Serious: Yes (Life-Threatening, Other)
  Sender: FDA-Public Use
  Company Number: JP-PFIZER INC-2018241446

PATIENT
  Age: 63 Year
  Sex: Female
  Weight: 56.6 kg

DRUGS (4)
  1. CARBOPLATIN. [Suspect]
     Active Substance: CARBOPLATIN
     Indication: LUNG ADENOCARCINOMA
     Dosage: 400 MG/M2, CYCLIC
     Dates: start: 201511
  2. PACLITAXEL. [Suspect]
     Active Substance: PACLITAXEL
     Indication: LUNG ADENOCARCINOMA
     Dosage: 200 MG/M2, CYCLIC
     Dates: start: 201511
  3. GEFITINIB. [Suspect]
     Active Substance: GEFITINIB
     Dosage: 250 MG, ALTERNATE DAY (250 MG/DAY ON ALTERNATE DAYS)
     Dates: start: 201601
  4. GEFITINIB. [Suspect]
     Active Substance: GEFITINIB
     Indication: LUNG ADENOCARCINOMA STAGE IV
     Dosage: 250 MG, DAILY
     Dates: start: 201408, end: 201511

REACTIONS (3)
  - Decreased appetite [Unknown]
  - Neutropenia [Unknown]
  - Neuropathy peripheral [Unknown]
